FAERS Safety Report 7002162-9 (Version None)
Quarter: 2010Q3

REPORT INFORMATION
  Report Type: 
  Country: None (occurrence: None)
  Receive Date: 20100920
  Receipt Date: 20100708
  Transmission Date: 20110219
  Serious: No
  Sender: FDA-Public Use
  Company Number: US-ASTRAZENECA-2010SE27967

PATIENT
  Sex: Male
  Weight: 89.8 kg

DRUGS (3)
  1. SEROQUEL [Suspect]
     Indication: SLEEP DISORDER
     Route: 048
  2. SEROQUEL [Suspect]
     Indication: BIPOLAR DISORDER
     Route: 048
  3. ADDERALL 10 [Concomitant]
     Indication: ATTENTION DEFICIT/HYPERACTIVITY DISORDER

REACTIONS (8)
  - CONFUSIONAL STATE [None]
  - FATIGUE [None]
  - HANGOVER [None]
  - INCREASED APPETITE [None]
  - SEDATION [None]
  - SEXUAL DYSFUNCTION [None]
  - THIRST [None]
  - VISION BLURRED [None]
